FAERS Safety Report 8949698 (Version 3)
Quarter: 2013Q3

REPORT INFORMATION
  Report Type: Report from Study
  Country: NZ (occurrence: NZ)
  Receive Date: 20121206
  Receipt Date: 20130814
  Transmission Date: 20140515
  Serious: Yes (Death)
  Sender: FDA-Public Use
  Company Number: PHHY2012NZ111991

PATIENT
  Sex: Male
  Weight: 73 kg

DRUGS (3)
  1. CLOZARIL [Suspect]
     Indication: SCHIZOPHRENIA
     Dosage: 600 MG DAILY
  2. AMISULPRIDE [Concomitant]
     Dosage: 500 MG, DAILY
     Route: 048
  3. BENZTROPINE [Concomitant]
     Indication: EXTRAPYRAMIDAL DISORDER
     Dosage: 3 MG, DAILY
     Route: 048

REACTIONS (7)
  - Sepsis [Fatal]
  - Intestinal ischaemia [Fatal]
  - Intestinal dilatation [Fatal]
  - Feeling hot [Unknown]
  - Malaise [Unknown]
  - Vomiting [Unknown]
  - Diarrhoea [Unknown]
